FAERS Safety Report 24216994 (Version 1)
Quarter: 2024Q3

REPORT INFORMATION
  Report Type: Spontaneous
  Country: US (occurrence: None)
  Receive Date: 20240815
  Receipt Date: 20240815
  Transmission Date: 20241017
  Serious: Yes (Death)
  Sender: Public
  Company Number: None

PATIENT
  Age: 40 Year
  Sex: Female

DRUGS (1)
  1. INVEGA TRINZA [Suspect]
     Active Substance: PALIPERIDONE PALMITATE
     Indication: Bipolar disorder
     Dosage: FREQ: INJECT 1 SYRINGE IN THE MUSCLE EVERY 3 MONTHS
     Route: 030
     Dates: start: 20240521, end: 202407

REACTIONS (1)
  - Death [None]

NARRATIVE: CASE EVENT DATE: 20240701
